FAERS Safety Report 15935768 (Version 2)
Quarter: 2020Q3

REPORT INFORMATION
  Report Type: Spontaneous
  Country: US (occurrence: US)
  Receive Date: 20190208
  Receipt Date: 20200921
  Transmission Date: 20201102
  Serious: No
  Sender: FDA-Public Use
  Company Number: US-BIOGEN-2018BI00509683

PATIENT
  Age: 28 Year
  Sex: Male

DRUGS (2)
  1. PLEGRIDY [Suspect]
     Active Substance: PEGINTERFERON BETA-1A
     Indication: MULTIPLE SCLEROSIS
     Route: 050
     Dates: start: 20170101
  2. PLEGRIDY [Suspect]
     Active Substance: PEGINTERFERON BETA-1A
     Route: 050
     Dates: start: 20200906

REACTIONS (7)
  - Cough [Unknown]
  - Pain [Unknown]
  - Injection site rash [Unknown]
  - Throat irritation [Unknown]
  - Injection site reaction [Unknown]
  - Injection site dryness [Unknown]
  - Influenza like illness [Unknown]

NARRATIVE: CASE EVENT DATE: 20181020
